FAERS Safety Report 19315598 (Version 2)
Quarter: 2021Q3

REPORT INFORMATION
  Report Type: Spontaneous
  Country: US (occurrence: US)
  Receive Date: 20210527
  Receipt Date: 20210826
  Transmission Date: 20211014
  Serious: Yes (Death, Hospitalization, Other)
  Sender: FDA-Public Use
  Company Number: US-PURDUE PHARMA-USA-2021-0261768

PATIENT
  Age: 18 Year
  Sex: Male

DRUGS (2)
  1. FENTANYL. [Suspect]
     Active Substance: FENTANYL
     Indication: PRODUCT USED FOR UNKNOWN INDICATION
     Route: 065
  2. OXYCONTIN [Suspect]
     Active Substance: OXYCODONE HYDROCHLORIDE
     Indication: PRODUCT USED FOR UNKNOWN INDICATION
     Route: 048

REACTIONS (7)
  - Product counterfeit [Unknown]
  - Unresponsive to stimuli [Unknown]
  - Drug abuse [Unknown]
  - Loss of consciousness [Unknown]
  - Brain death [Unknown]
  - Overdose [Fatal]
  - Hypopnoea [Unknown]

NARRATIVE: CASE EVENT DATE: 202012
